FAERS Safety Report 6295168-9 (Version None)
Quarter: 2009Q3

REPORT INFORMATION
  Report Type: 
  Country: None (occurrence: None)
  Receive Date: 20090803
  Receipt Date: 20090720
  Transmission Date: 20100115
  Serious: Yes (Hospitalization, Other)
  Sender: FDA-Public Use
  Company Number: ZA-AVENTIS-200818826GDDC

PATIENT
  Age: 54 Year
  Sex: Female
  Weight: 37.5 kg

DRUGS (7)
  1. RIFAMPICIN [Suspect]
     Indication: TUBERCULOSIS
     Dates: start: 20080721, end: 20080916
  2. CODE UNBROKEN [Suspect]
     Indication: TUBERCULOSIS
     Dates: start: 20080721, end: 20080916
  3. PYRAZINAMIDE [Suspect]
     Indication: TUBERCULOSIS
     Dates: start: 20080721, end: 20080916
  4. CODE UNBROKEN [Suspect]
     Dates: start: 20080721, end: 20080916
  5. CODE UNBROKEN [Suspect]
     Dates: start: 20080721, end: 20080816
  6. RIDAQ [Suspect]
     Dosage: DOSE: 12.5/25
     Route: 048
     Dates: start: 20080501
  7. NORVASC [Concomitant]
     Dosage: DOSE: 5-10
     Route: 048
     Dates: start: 20080501

REACTIONS (2)
  - DIABETES MELLITUS [None]
  - HEPATIC ENZYME INCREASED [None]
